FAERS Safety Report 7539103-1 (Version None)
Quarter: 2011Q2

REPORT INFORMATION
  Report Type: 
  Country: None (occurrence: None)
  Receive Date: 20110610
  Receipt Date: 20010309
  Transmission Date: 20111010
  Serious: Yes (Life-Threatening)
  Sender: FDA-Public Use
  Company Number: PHBS2001CA01101

PATIENT
  Sex: Female
  Weight: 75.5 kg

DRUGS (6)
  1. LACTULOSE [Concomitant]
     Dosage: 30 ML, QD
  2. HYDROXYZINE [Concomitant]
     Dosage: 25 MG, BID
  3. CLOZARIL [Suspect]
     Indication: SCHIZOPHRENIA
     Dosage: 600 MG, QD
     Route: 048
     Dates: start: 19970708
  4. SYNTHROID [Concomitant]
     Dosage: .125 MG, QD
  5. LORAZEPAM [Concomitant]
     Dosage: 1 MG, TID
  6. VALPROATE SODIUM [Concomitant]
     Dosage: 1000 MG, BID

REACTIONS (1)
  - CEREBROVASCULAR ACCIDENT [None]
